FAERS Safety Report 21958039 (Version 1)
Quarter: 2023Q1

REPORT INFORMATION
  Report Type: Spontaneous
  Country: IT (occurrence: IT)
  Receive Date: 20230206
  Receipt Date: 20230206
  Transmission Date: 20230417
  Serious: Yes (Hospitalization)
  Sender: FDA-Public Use
  Company Number: None

PATIENT
  Age: 40 Year
  Sex: Female
  Weight: 60 kg

DRUGS (2)
  1. RELPAX [Suspect]
     Active Substance: ELETRIPTAN HYDROBROMIDE
     Indication: Migraine
     Dosage: UNK UNK, PRN
     Route: 048
     Dates: start: 2004, end: 2019
  2. LAMICTAL [Concomitant]
     Active Substance: LAMOTRIGINE
     Indication: Migraine with aura
     Dosage: UNK, 2 TIMES A DAY
     Route: 065

REACTIONS (5)
  - Swollen tongue [Recovered/Resolved]
  - Troponin increased [Recovered/Resolved]
  - Chest discomfort [Recovered/Resolved]
  - Chest pain [Recovered/Resolved]
  - Tachycardia [Recovered/Resolved]

NARRATIVE: CASE EVENT DATE: 20191205
